FAERS Safety Report 5423807-0 (Version None)
Quarter: 2007Q3

REPORT INFORMATION
  Report Type: 
  Country: None (occurrence: None)
  Receive Date: 20070823
  Receipt Date: 20070816
  Transmission Date: 20080115
  Serious: Yes (Other)
  Sender: FDA-Public Use
  Company Number: US-ELI_LILLY_AND_COMPANY-US200708003705

PATIENT
  Sex: Female

DRUGS (2)
  1. BYETTA [Suspect]
     Indication: DRUG USE FOR UNKNOWN INDICATION
     Dosage: 10 UG, 2/D
     Route: 058
  2. BYETTA [Suspect]
     Dosage: 10 UG, DAILY (1/D)
     Route: 058

REACTIONS (3)
  - ARTHRITIS [None]
  - BLOOD GLUCOSE INCREASED [None]
  - KNEE ARTHROPLASTY [None]
